FAERS Safety Report 8116280-5 (Version None)
Quarter: 2012Q1

REPORT INFORMATION
  Report Type: 
  Country: None (occurrence: None)
  Receive Date: 20120206
  Receipt Date: 20120130
  Transmission Date: 20120608
  Serious: Yes (Hospitalization)
  Sender: FDA-Public Use
  Company Number: FR-GENZYME-CAMP-1001841

PATIENT
  Age: 76 Year
  Sex: Male

DRUGS (7)
  1. CAMPATH [Suspect]
     Indication: T-CELL LYMPHOMA
     Dosage: 30 MG, Q2W
     Route: 058
     Dates: start: 20110630, end: 20110729
  2. PREDNISONE TAB [Suspect]
     Indication: T-CELL LYMPHOMA
     Dosage: 100 MG X 4 DAYS Q2W
     Route: 048
     Dates: start: 20110621, end: 20110802
  3. VINCRISTINE [Suspect]
     Indication: T-CELL LYMPHOMA
     Dosage: 1.4 MG/M2, Q2W ON DAY 1
     Route: 042
     Dates: start: 20110621, end: 20110729
  4. METOPROLOL [Concomitant]
     Indication: HYPERTENSION
     Dosage: 200 MG, QD
     Route: 048
     Dates: start: 19960101
  5. DOXORUBICIN HCL [Suspect]
     Indication: T-CELL LYMPHOMA
     Dosage: 50 MG/M2, Q2W ON DAY 1
     Route: 042
     Dates: start: 20110630, end: 20110729
  6. CYCLOPHOSPHAMIDE [Suspect]
     Indication: T-CELL LYMPHOMA
     Dosage: 750 MG/M2, Q2W ON DAY 1
     Route: 042
     Dates: start: 20110630, end: 20110729
  7. VALACICLOVIR [Concomitant]
     Indication: ANTIVIRAL PROPHYLAXIS
     Dosage: 1000 MG, QD
     Route: 048
     Dates: start: 20110630

REACTIONS (1)
  - CEREBRAL ISCHAEMIA [None]
